FAERS Safety Report 13680831 (Version 1)
Quarter: 2017Q2

REPORT INFORMATION
  Report Type: Spontaneous
  Country: US (occurrence: US)
  Receive Date: 20170622
  Receipt Date: 20170622
  Transmission Date: 20170830
  Serious: Yes (Hospitalization)
  Sender: FDA-Public Use
  Company Number: None

PATIENT
  Age: 81 Year
  Sex: Female
  Weight: 65.8 kg

DRUGS (1)
  1. BENDAMUSTINE HYDROCHLORIDE. [Suspect]
     Active Substance: BENDAMUSTINE HYDROCHLORIDE
     Dates: end: 20160331

REACTIONS (4)
  - Haemorrhage intracranial [None]
  - Thrombocytopenia [None]
  - Subdural haematoma [None]
  - Atrial fibrillation [None]

NARRATIVE: CASE EVENT DATE: 20170605
